FAERS Safety Report 6646007-5 (Version None)
Quarter: 2010Q1

REPORT INFORMATION
  Report Type: 
  Country: None (occurrence: None)
  Receive Date: 20100323
  Receipt Date: 20100312
  Transmission Date: 20100710
  Serious: Yes (Hospitalization)
  Sender: FDA-Public Use
  Company Number: FR-PFIZER INC-2010032038

PATIENT
  Age: 40 Year
  Sex: Male
  Weight: 83 kg

DRUGS (2)
  1. IRINOTECAN HCL [Suspect]
     Indication: METASTASES TO PERITONEUM
     Dosage: 300 MG
     Route: 033
     Dates: start: 20100118
  2. MITOMYCIN [Suspect]
     Indication: METASTASES TO PERITONEUM
     Dosage: 58 MG
     Route: 033
     Dates: start: 20100118

REACTIONS (1)
  - ABSCESS [None]
